FAERS Safety Report 14761261 (Version 1)
Quarter: 2018Q2

REPORT INFORMATION
  Report Type: Report from Study
  Country: MX (occurrence: MX)
  Receive Date: 20180415
  Receipt Date: 20180415
  Transmission Date: 20180711
  Serious: Yes (Other)
  Sender: FDA-Public Use
  Company Number: PHHY2018MX061132

PATIENT
  Sex: Female
  Weight: 64 kg

DRUGS (7)
  1. ASPIRIN. [Concomitant]
     Active Substance: ASPIRIN
     Indication: CARDIAC DISORDER
     Dosage: 1 DF, QD (6 YEARS AGO)
     Route: 048
  2. BENECOL [Concomitant]
     Indication: BLOOD IRON
     Dosage: 600 MG, QD (6 YEARS AGO)
     Route: 048
  3. ATORVASTATIN [Suspect]
     Active Substance: ATORVASTATIN
     Indication: CARDIAC DISORDER
     Dosage: 20 MG, QD
     Route: 048
  4. FOLIC ACID. [Concomitant]
     Active Substance: FOLIC ACID
     Indication: CARDIAC DISORDER
     Dosage: 30 MG, QD (6 YEARS AGO)
     Route: 048
  5. FUROSEMIDE. [Concomitant]
     Active Substance: FUROSEMIDE
     Indication: PRODUCT USED FOR UNKNOWN INDICATION
     Dosage: 20 MG, QD
     Route: 048
     Dates: start: 20161201
  6. LOPRESOR R [Suspect]
     Active Substance: METOPROLOL SUCCINATE
     Indication: PRODUCT USED FOR UNKNOWN INDICATION
     Dosage: 1 OT, QD
     Route: 065
  7. LOBIVON [Concomitant]
     Active Substance: NEBIVOLOL HYDROCHLORIDE
     Indication: CARDIAC DISORDER
     Dosage: 0.5 DF (5MG), QD
     Route: 048

REACTIONS (4)
  - Product use in unapproved indication [Unknown]
  - Cardiac failure [Unknown]
  - Infarction [Unknown]
  - Haemoglobin decreased [Unknown]
